FAERS Safety Report 16930305 (Version 2)
Quarter: 2019Q4

REPORT INFORMATION
  Report Type: Spontaneous
  Country: US (occurrence: US)
  Receive Date: 20191017
  Receipt Date: 20191106
  Transmission Date: 20200122
  Serious: No
  Sender: FDA-Public Use
  Company Number: US-PFIZER INC-2019443537

PATIENT
  Age: 60 Year

DRUGS (2)
  1. RELPAX [Suspect]
     Active Substance: ELETRIPTAN HYDROBROMIDE
     Indication: BACK PAIN
     Dosage: 40 MG, AS NEEDED (TAKE 1 TABLET BY MOUTH AS NEEDED, MAY REPEAT IN2 HOURS, MAXIMUM 80 MG PER DAY FOR)
     Route: 048
  2. CELEBREX [Suspect]
     Active Substance: CELECOXIB
     Indication: RADIUS FRACTURE
     Dosage: 200 MG, DAILY
     Route: 048

REACTIONS (1)
  - Cerebral disorder [Unknown]

NARRATIVE: CASE EVENT DATE: 20191010
